FAERS Safety Report 14007317 (Version 2)
Quarter: 2017Q4

REPORT INFORMATION
  Report Type: Spontaneous
  Country: BR (occurrence: BR)
  Receive Date: 20170925
  Receipt Date: 20171012
  Transmission Date: 20180321
  Serious: Yes (Other)
  Sender: FDA-Public Use
  Company Number: BR-ROCHE-1994451

PATIENT
  Sex: Female

DRUGS (1)
  1. RIVOTRIL [Suspect]
     Active Substance: CLONAZEPAM
     Indication: LABYRINTHITIS
     Route: 065
     Dates: start: 1997

REACTIONS (12)
  - Loss of consciousness [Unknown]
  - Joint range of motion decreased [Not Recovered/Not Resolved]
  - Hiatus hernia [Unknown]
  - Tendon disorder [Not Recovered/Not Resolved]
  - Drug hypersensitivity [Not Recovered/Not Resolved]
  - Product packaging issue [Unknown]
  - Cataract [Unknown]
  - Thyroid cancer [Recovered/Resolved]
  - Cervix disorder [Unknown]
  - Product dropper issue [Unknown]
  - Salivary gland disorder [Unknown]
  - Gallbladder disorder [Unknown]
